FAERS Safety Report 18595159 (Version 7)
Quarter: 2021Q1

REPORT INFORMATION
  Report Type: Report from Study
  Country: US (occurrence: US)
  Receive Date: 20201209
  Receipt Date: 20210323
  Transmission Date: 20210419
  Serious: Yes (Hospitalization, Other)
  Sender: FDA-Public Use
  Company Number: NVSC2020US327398

PATIENT
  Age: 48 Year
  Sex: Female
  Weight: 81.63 kg

DRUGS (4)
  1. ILARIS [Suspect]
     Active Substance: CANAKINUMAB
     Dosage: 150 MG (EVERY 8 WEEKS)
     Route: 058
     Dates: start: 20191219
  2. ILARIS [Suspect]
     Active Substance: CANAKINUMAB
     Dosage: UNK
     Route: 065
     Dates: start: 20210114
  3. ILARIS [Suspect]
     Active Substance: CANAKINUMAB
     Indication: CRYOPYRIN ASSOCIATED PERIODIC SYNDROME
     Dosage: UNK
     Route: 065
     Dates: start: 2014
  4. ILARIS [Suspect]
     Active Substance: CANAKINUMAB
     Dosage: 150 UG, EVERY 8 WEEKS
     Route: 058
     Dates: start: 20191221

REACTIONS (3)
  - Diverticulitis [Unknown]
  - Intestinal obstruction [Unknown]
  - Malaise [Unknown]

NARRATIVE: CASE EVENT DATE: 20201207
